FAERS Safety Report 7478866-0 (Version None)
Quarter: 2011Q2

REPORT INFORMATION
  Report Type: 
  Country: None (occurrence: None)
  Receive Date: 20110513
  Receipt Date: 20110511
  Transmission Date: 20111010
  Serious: Yes (Other)
  Sender: FDA-Public Use
  Company Number: US-TEVA-235726USA

PATIENT

DRUGS (1)
  1. CLARAVIS [Suspect]
     Indication: ACNE
     Route: 048

REACTIONS (2)
  - SUICIDAL IDEATION [None]
  - PSYCHIATRIC SYMPTOM [None]
